FAERS Safety Report 10674644 (Version 7)
Quarter: 2015Q3

REPORT INFORMATION
  Report Type: Report from Study
  Country: DE (occurrence: DE)
  Receive Date: 20141224
  Receipt Date: 20150731
  Transmission Date: 20151125
  Serious: Yes (Hospitalization, Other)
  Sender: FDA-Public Use
  Company Number: DE-INCYTE CORPORATION-2014IN002089

PATIENT
  Age: 64 Year
  Sex: Female
  Weight: 63 kg

DRUGS (14)
  1. INCB018424 [Suspect]
     Active Substance: RUXOLITINIB
     Dosage: 5 MG, BID (2 DF PER DAY)
     Route: 048
     Dates: start: 20140814, end: 20141029
  2. DOXYCYCLINE. [Concomitant]
     Active Substance: DOXYCYCLINE
     Indication: PHARYNGITIS
     Dosage: UNK
     Route: 065
     Dates: start: 20140613
  3. INCB018424 [Suspect]
     Active Substance: RUXOLITINIB
     Dosage: 15 MG, BID (2 DF PER DAY)
     Route: 048
     Dates: start: 20140613, end: 20140813
  4. INCB018424 [Suspect]
     Active Substance: RUXOLITINIB
     Dosage: 15 MG, QD (1 DF PER DAY)
     Route: 048
     Dates: start: 20141112, end: 20141208
  5. INCB018424 [Suspect]
     Active Substance: RUXOLITINIB
     Dosage: 15 MG, BID (2 DF PER DAY)
     Route: 048
     Dates: start: 20141209
  6. FORMOTEROL [Concomitant]
     Active Substance: FORMOTEROL
     Indication: BRONCHITIS
     Dosage: UNK
     Route: 065
     Dates: start: 20140513
  7. CLONT [Concomitant]
     Indication: PRODUCT USED FOR UNKNOWN INDICATION
     Dosage: UNK
     Route: 065
     Dates: start: 20150217, end: 20150306
  8. INCB018424 [Suspect]
     Active Substance: RUXOLITINIB
     Indication: MYELOFIBROSIS
     Dosage: 5 MG, BID (2DF PER DAY)
     Route: 048
     Dates: start: 20140528
  9. LITALIR [Concomitant]
     Active Substance: HYDROXYUREA
     Indication: MYELOFIBROSIS
     Dosage: UNK
     Route: 065
     Dates: start: 20141204
  10. IBUPROFEN. [Concomitant]
     Active Substance: IBUPROFEN
     Indication: INTERVERTEBRAL DISC PROTRUSION
     Dosage: UNK
     Route: 065
     Dates: start: 20130902
  11. IBUPROFEN. [Concomitant]
     Active Substance: IBUPROFEN
     Indication: SPINAL OSTEOARTHRITIS
  12. INCB018424 [Suspect]
     Active Substance: RUXOLITINIB
     Dosage: 15 MG, BID (2 DF PER DAY)
     Route: 048
     Dates: start: 20141030, end: 20141111
  13. CEFAZOLIN [Concomitant]
     Active Substance: CEFAZOLIN
     Indication: DYSPNOEA
  14. CEFAZOLIN [Concomitant]
     Active Substance: CEFAZOLIN
     Indication: LARYNGEAL OEDEMA
     Dosage: UNK
     Route: 065
     Dates: start: 20141020, end: 20150306

REACTIONS (5)
  - Second primary malignancy [Not Recovered/Not Resolved]
  - Radiation larynx injury [Recovering/Resolving]
  - Laryngeal squamous cell carcinoma [Not Recovered/Not Resolved]
  - Anaemia [Unknown]
  - Pneumonia [Recovering/Resolving]

NARRATIVE: CASE EVENT DATE: 20140711
